FAERS Safety Report 7717634-9 (Version None)
Quarter: 2011Q3

REPORT INFORMATION
  Report Type: 
  Country: None (occurrence: None)
  Receive Date: 20110830
  Receipt Date: 20110830
  Transmission Date: 20111222
  Serious: Yes (Hospitalization)
  Sender: FDA-Public Use
  Company Number: None

PATIENT
  Sex: Female
  Weight: 86.182 kg

DRUGS (1)
  1. LIALDA [Suspect]
     Indication: COLITIS ULCERATIVE
     Dosage: TWO TABLETS
     Route: 048
     Dates: start: 20110713, end: 20110719

REACTIONS (3)
  - REFUSAL OF TREATMENT BY PATIENT [None]
  - RECTAL HAEMORRHAGE [None]
  - PANCREATITIS ACUTE [None]
